FAERS Safety Report 13667857 (Version 1)
Quarter: 2017Q2

REPORT INFORMATION
  Report Type: Spontaneous
  Country: US (occurrence: US)
  Receive Date: 20170620
  Receipt Date: 20170620
  Transmission Date: 20170830
  Serious: Yes (Other)
  Sender: FDA-Public Use
  Company Number: US-ZYDUS-015481

PATIENT
  Age: 27 Year
  Sex: Male

DRUGS (24)
  1. ACICLOVIR [Concomitant]
     Active Substance: ACYCLOVIR
     Indication: HYPERKERATOSIS
     Route: 065
  2. LORAZEPAM. [Concomitant]
     Active Substance: LORAZEPAM
     Indication: AGITATION
     Dosage: STRENGTH: 2 MG/ML SOLUTION
     Route: 042
  3. CLONIDINE. [Suspect]
     Active Substance: CLONIDINE
     Indication: INTENTIONAL SELF-INJURY
     Route: 065
  4. PIPERACILLIN/TAZOBACTAM [Concomitant]
     Indication: PNEUMONIA ASPIRATION
     Route: 065
  5. NALOXONE [Concomitant]
     Active Substance: NALOXONE
     Indication: UNRESPONSIVE TO STIMULI
     Route: 065
  6. OLANZAPINE. [Concomitant]
     Active Substance: OLANZAPINE
     Indication: PRODUCT USED FOR UNKNOWN INDICATION
     Dosage: UP TO 40 MG BY PEJ IN 1 DAY
     Route: 065
  7. GABAPENTIN. [Suspect]
     Active Substance: GABAPENTIN
     Indication: INTENTIONAL SELF-INJURY
     Route: 065
  8. BUSPIRONE [Concomitant]
     Active Substance: BUSPIRONE HYDROCHLORIDE
     Indication: INTENTIONAL SELF-INJURY
     Route: 065
  9. FENTANYL. [Concomitant]
     Active Substance: FENTANYL
     Indication: FRACTURE
     Route: 042
  10. NALOXONE [Concomitant]
     Active Substance: NALOXONE
     Indication: UNRESPONSIVE TO STIMULI
     Route: 065
  11. BUSPIRONE [Concomitant]
     Active Substance: BUSPIRONE HYDROCHLORIDE
     Indication: INTENTIONAL SELF-INJURY
     Dosage: 20MG BY PEG AT 10 AM AND 30MG BY PEG 3 TIMES A DAY
     Route: 065
  12. VALPROIC ACID. [Suspect]
     Active Substance: VALPROIC ACID
     Indication: INTENTIONAL SELF-INJURY
     Dosage: 250 MG/5 ML SOLUTION
     Route: 065
  13. LORAZEPAM. [Concomitant]
     Active Substance: LORAZEPAM
     Indication: AGITATION
     Route: 042
  14. TOPIRAMATE. [Concomitant]
     Active Substance: TOPIRAMATE
     Indication: INTENTIONAL SELF-INJURY
     Route: 065
  15. VANCOMYCIN [Concomitant]
     Active Substance: VANCOMYCIN
     Indication: PNEUMONIA ASPIRATION
     Route: 065
  16. CHLORPROMAZINE. [Concomitant]
     Active Substance: CHLORPROMAZINE
     Indication: PRODUCT USED FOR UNKNOWN INDICATION
     Dosage: UP TO 350 MG TOTAL IV IN 1 DAY
     Route: 042
  17. HALOPERIDOL. [Suspect]
     Active Substance: HALOPERIDOL
     Indication: PRODUCT USED FOR UNKNOWN INDICATION
     Route: 042
  18. GABAPENTIN. [Suspect]
     Active Substance: GABAPENTIN
     Indication: INTENTIONAL SELF-INJURY
     Route: 065
  19. RISPERIDONE. [Concomitant]
     Active Substance: RISPERIDONE
     Indication: INTENTIONAL SELF-INJURY
     Route: 065
  20. FLUOXETINE [Concomitant]
     Active Substance: FLUOXETINE HYDROCHLORIDE
     Indication: INTENTIONAL SELF-INJURY
     Route: 065
  21. OXYCODONE/OXYCODONE HYDROCHLORIDE/OXYCODONE PECTINATE/OXYCODONE TEREPHTHALATE [Concomitant]
     Indication: FRACTURE
     Route: 065
  22. ACICLOVIR [Concomitant]
     Active Substance: ACYCLOVIR
     Indication: DERMATITIS HERPETIFORMIS
     Route: 065
  23. NALOXONE [Concomitant]
     Active Substance: NALOXONE
     Indication: UNRESPONSIVE TO STIMULI
     Route: 065
  24. OXYCODONE/OXYCODONE HYDROCHLORIDE/OXYCODONE PECTINATE/OXYCODONE TEREPHTHALATE [Concomitant]
     Indication: FRACTURE
     Route: 065

REACTIONS (7)
  - Hypotension [Unknown]
  - Drug effect incomplete [Unknown]
  - Sedation [Unknown]
  - Bradycardia [Unknown]
  - Transaminases increased [Unknown]
  - Electrocardiogram QT prolonged [Unknown]
  - Hyperammonaemia [Unknown]
